FAERS Safety Report 10771203 (Version 2)
Quarter: 2015Q2

REPORT INFORMATION
  Report Type: Not Available
  Country: FR (occurrence: FR)
  Receive Date: 20150206
  Receipt Date: 20150518
  Transmission Date: 20150821
  Serious: Yes (Hospitalization)
  Sender: FDA-Public Use
  Company Number: FR-MUNDIPHARMA DS AND PHARMACOVIGILANCE-GBR-2015-0025310

PATIENT
  Age: 84 Year
  Sex: Male

DRUGS (9)
  1. TRIFLUCAN [Concomitant]
     Active Substance: FLUCONAZOLE
  2. OXYNORM 5 MG, GELULE [Suspect]
     Active Substance: OXYCODONE HYDROCHLORIDE
     Indication: SPINAL PAIN
     Dosage: 5 MG, Q4H PRN
     Route: 048
     Dates: start: 201412
  3. LESCOL [Concomitant]
     Active Substance: FLUVASTATIN SODIUM
     Dosage: 20 MG, UNK
  4. VERAPAMIL [Concomitant]
     Active Substance: VERAPAMIL HYDROCHLORIDE
     Dosage: 240 MG, DAILY
  5. LORAMYC [Concomitant]
     Active Substance: MICONAZOLE
     Dosage: 50 MG, DAILY
  6. PLAVIX [Concomitant]
     Active Substance: CLOPIDOGREL BISULFATE
     Dosage: 75 MG, DAILY
  7. FUROSEMIDE. [Concomitant]
     Active Substance: FUROSEMIDE
     Dosage: 40 MG, DAILY
  8. OXYCONTIN [Suspect]
     Active Substance: OXYCODONE HYDROCHLORIDE
     Indication: SPINAL PAIN
     Dosage: 20 MG, Q12H
     Route: 048
     Dates: start: 201412
  9. SODIUM BICARBONATE. [Concomitant]
     Active Substance: SODIUM BICARBONATE
     Dosage: 1.4 %, TID

REACTIONS (2)
  - Urinary retention [Recovered/Resolved]
  - Disorientation [Recovered/Resolved]

NARRATIVE: CASE EVENT DATE: 20141230
